FAERS Safety Report 5130543-7 (Version None)
Quarter: 2006Q4

REPORT INFORMATION
  Report Type: 
  Country: None (occurrence: None)
  Receive Date: 20061013
  Receipt Date: 20061004
  Transmission Date: 20070319
  Serious: Yes (Other)
  Sender: FDA-Public Use
  Company Number: 148424USA

PATIENT
  Age: 59 Year
  Sex: Male

DRUGS (3)
  1. CYCLOSPORINE [Suspect]
     Indication: PROPHYLAXIS AGAINST TRANSPLANT REJECTION
     Dosage: 3 MG/KG/DAY
  2. CYCLOPHOSPHAMIDE [Suspect]
     Dosage: 120MG/KG
  3. FLUDARABINE PHOSPHATE [Suspect]

REACTIONS (1)
  - MALIGNANT MELANOMA [None]
